FAERS Safety Report 8405740-5 (Version None)
Quarter: 2012Q1

REPORT INFORMATION
  Report Type: 
  Country: None (occurrence: None)
  Receive Date: 20120323
  Receipt Date: 20110617
  Transmission Date: 20120608
  Serious: Yes (Other)
  Sender: FDA-Public Use
  Company Number: 163-21880-11052507

PATIENT
  Age: 57 Year
  Sex: Female

DRUGS (7)
  1. REVLIMID [Suspect]
     Indication: MULTIPLE MYELOMA
     Dosage: 25 MG, X 21 DAYS, PO, 25 MG, 1 IN 1 D, PO, 15 MG, QD X 21 D OFF 7, PO
     Route: 048
     Dates: start: 20110501
  2. REVLIMID [Suspect]
     Indication: MULTIPLE MYELOMA
     Dosage: 25 MG, X 21 DAYS, PO, 25 MG, 1 IN 1 D, PO, 15 MG, QD X 21 D OFF 7, PO
     Route: 048
     Dates: start: 20110223, end: 20110419
  3. REVLIMID [Suspect]
     Indication: MULTIPLE MYELOMA
     Dosage: 25 MG, X 21 DAYS, PO, 25 MG, 1 IN 1 D, PO, 15 MG, QD X 21 D OFF 7, PO
     Route: 048
     Dates: start: 20101101
  4. LOW DOSE ASA (ACETYLSALICYLIC ACID) [Concomitant]
  5. MORPHINE SUL (MORPHINE SULFATE) [Concomitant]
  6. REVLIMID [Suspect]
  7. TENORMIN [Concomitant]

REACTIONS (5)
  - FATIGUE [None]
  - ASTHENIA [None]
  - PANCYTOPENIA [None]
  - HAEMOGLOBIN DECREASED [None]
  - URINE ODOUR ABNORMAL [None]
